FAERS Safety Report 5871362-3 (Version None)
Quarter: 2008Q3

REPORT INFORMATION
  Report Type: 
  Country: None (occurrence: None)
  Receive Date: 20080904
  Receipt Date: 20080904
  Transmission Date: 20090109
  Serious: Yes (Life-Threatening)
  Sender: FDA-Public Use
  Company Number: None

PATIENT
  Sex: Female
  Weight: 68.4932 kg

DRUGS (1)
  1. FENOFIBRATE [Suspect]
     Indication: BLOOD CHOLESTEROL
     Dosage: 1 TAB DAILY
     Dates: start: 20080525

REACTIONS (3)
  - FEELING ABNORMAL [None]
  - GAIT DISTURBANCE [None]
  - PAIN [None]
